FAERS Safety Report 18580910 (Version 2)
Quarter: 2020Q4

REPORT INFORMATION
  Report Type: Spontaneous
  Country: GR (occurrence: GR)
  Receive Date: 20201204
  Receipt Date: 20201218
  Transmission Date: 20210114
  Serious: Yes (Hospitalization, Other)
  Sender: FDA-Public Use
  Company Number: GR-PFIZER INC-2020474693

PATIENT
  Age: 72 Year
  Sex: Male

DRUGS (1)
  1. METHYLPREDNISOLONE. [Suspect]
     Active Substance: METHYLPREDNISOLONE
     Indication: ASBESTOSIS
     Dosage: UNK

REACTIONS (7)
  - Septic pulmonary embolism [Recovered/Resolved]
  - Chronic obstructive pulmonary disease [Unknown]
  - Thrombophlebitis septic [Recovered/Resolved]
  - Off label use [Unknown]
  - Renal failure [Unknown]
  - Coronary artery disease [Unknown]
  - Enterococcal bacteraemia [Recovered/Resolved]
